FAERS Safety Report 9520883 (Version 1)
Quarter: 2013Q1

REPORT INFORMATION
  Report Type: Spontaneous
  Country: US (occurrence: None)
  Receive Date: 20130305
  Receipt Date: 20130305
  Transmission Date: 20140127
  Serious: Yes (Hospitalization)
  Sender: FDA-Public Use
  Company Number: 163-21880-12080062

PATIENT
  Age: 77 Year
  Sex: Female
  Weight: 63 kg

DRUGS (13)
  1. REVLIMID [Suspect]
     Indication: PLASMA CELL MYELOMA
     Dosage: 25 MG, 1 IN 1 D, PO
     Route: 048
     Dates: start: 20120228
  2. MAGIC MOUTHWASH (SOLUTION) [Concomitant]
  3. DEXAMEHTASONE (DEXAMETHASONE) (TABLETS) [Concomitant]
  4. HYDROCODONE/ACETAMINOPHEN (REMEDEINE) [Concomitant]
  5. PREVACID (LANSOPRAZOLE) (UNKNOWN) [Concomitant]
  6. PROCHLORPERAZINE MALEATE (PROCHLORPERAZINE MALEATE) (TABLETS)? [Concomitant]
  7. ZOLEDRONIC ACID (ZOLEDRONIC ACID) (TABLETS) [Concomitant]
  8. EYE DROPS (TETRYZOLINE HYDROCHLORIDE) (SOLUTION) [Concomitant]
  9. IMODIUM A-D (LOPERAMIDE HYDROCHLORIDE) (TABLETS) [Concomitant]
  10. LANSOPRAZOLE (LANSOPRAZOLE) (CAPSULES)? [Concomitant]
  11. MULTIVITAMINS (MULTIVITAMINS) (TABLETS) [Concomitant]
  12. PRESERVISION/LUTEIN (PRESERVISION LUTEIN) (CAPSULES) [Concomitant]
  13. PREVALITE (PREVALITE) (POWDER) [Concomitant]

REACTIONS (1)
  - Pneumonia [None]
